FAERS Safety Report 6269622-X (Version None)
Quarter: 2009Q3

REPORT INFORMATION
  Report Type: 
  Country: None (occurrence: None)
  Receive Date: 20090714
  Receipt Date: 20090702
  Transmission Date: 20100115
  Serious: Yes (Other)
  Sender: FDA-Public Use
  Company Number: 2008AL008838

PATIENT
  Age: 56 Year
  Sex: Male

DRUGS (12)
  1. DIGOXIN [Suspect]
     Dosage: 0.25MG, DAILY, PO
     Route: 048
  2. NADOLOL [Concomitant]
  3. FUROSEMIDE [Concomitant]
  4. JANTOVEN [Concomitant]
  5. LOVENOX [Concomitant]
  6. WARFARIN SODIUM [Concomitant]
  7. CYCLOBENZAPR [Concomitant]
  8. ACETAMINOPHEN AND HYDROCODONE BITARTRATE [Concomitant]
  9. AMOXICILLIN [Concomitant]
  10. CEFDINIR [Concomitant]
  11. CLARITHROMYC [Concomitant]
  12. ALBUTEROL [Concomitant]

REACTIONS (2)
  - INJURY [None]
  - NO ADVERSE EVENT [None]
